FAERS Safety Report 19431813 (Version 1)
Quarter: 2021Q2

REPORT INFORMATION
  Report Type: Spontaneous
  Country: RW (occurrence: RW)
  Receive Date: 20210617
  Receipt Date: 20210617
  Transmission Date: 20210717
  Serious: Yes (Death, Other)
  Sender: FDA-Public Use
  Company Number: NVSC2021RW132960

PATIENT
  Age: 58 Year
  Sex: Female

DRUGS (1)
  1. GLIVEC [Suspect]
     Active Substance: IMATINIB MESYLATE
     Indication: CHRONIC MYELOID LEUKAEMIA
     Dosage: 400 MG (4 X 100MG TABLETS)
     Route: 065

REACTIONS (5)
  - Hepatic mass [Fatal]
  - Mass [Unknown]
  - Hepatic function abnormal [Unknown]
  - Chronic myeloid leukaemia transformation [Fatal]
  - Drug resistance [Unknown]

NARRATIVE: CASE EVENT DATE: 20210611
